FAERS Safety Report 8438865-9 (Version None)
Quarter: 2012Q2

REPORT INFORMATION
  Report Type: 
  Country: None (occurrence: None)
  Receive Date: 20120615
  Receipt Date: 20120604
  Transmission Date: 20120825
  Serious: Yes (Hospitalization)
  Sender: FDA-Public Use
  Company Number: FR-JNJFOC-20120518140

PATIENT
  Age: 72 Year
  Sex: Male

DRUGS (4)
  1. ANTICOAGULANTS [Concomitant]
     Indication: PRODUCT USED FOR UNKNOWN INDICATION
  2. ZYTIGA [Suspect]
     Indication: PROSTATE CANCER
     Route: 065
  3. ZYTIGA [Suspect]
     Route: 065
  4. PREDNISONE [Concomitant]
     Indication: PROSTATE CANCER

REACTIONS (3)
  - ACUTE CORONARY SYNDROME [None]
  - OEDEMA PERIPHERAL [None]
  - INAPPROPRIATE SCHEDULE OF DRUG ADMINISTRATION [None]
